FAERS Safety Report 6086817-9 (Version None)
Quarter: 2009Q1

REPORT INFORMATION
  Report Type: 
  Country: None (occurrence: None)
  Receive Date: 20090223
  Receipt Date: 20090211
  Transmission Date: 20090719
  Serious: Yes (Disabling, Other)
  Sender: FDA-Public Use
  Company Number: FR-PFIZER INC-2008062844

PATIENT

DRUGS (6)
  1. CHAMPIX [Suspect]
     Route: 048
     Dates: start: 20080611
  2. MIRTAZAPINE [Concomitant]
     Dosage: UNK
     Route: 048
  3. ALPRAZOLAM [Concomitant]
     Dosage: UNK
     Route: 048
  4. PAROXETINE [Concomitant]
     Dosage: UNK
     Route: 048
  5. ZOPICLONE [Concomitant]
     Dosage: UNK
     Route: 048
  6. CLIMAXOL [Concomitant]

REACTIONS (2)
  - DEPRESSION [None]
  - MAJOR DEPRESSION [None]
